FAERS Safety Report 13116835 (Version 3)
Quarter: 2017Q4

REPORT INFORMATION
  Report Type: Spontaneous
  Country: US (occurrence: US)
  Receive Date: 20170116
  Receipt Date: 20171208
  Transmission Date: 20180320
  Serious: No
  Sender: FDA-Public Use
  Company Number: US-PFIZER INC-2017015235

PATIENT
  Age: 52 Year
  Sex: Female
  Weight: 92.8 kg

DRUGS (2)
  1. GENOTROPIN MQ [Suspect]
     Active Substance: SOMATROPIN
     Dosage: 0.6 MG, DAILY
     Route: 058
  2. GENOTROPIN MQ [Suspect]
     Active Substance: SOMATROPIN
     Indication: PITUITARY TUMOUR
     Dosage: 4 MG, 1X/DAY [ONCE DAILY]
     Route: 058
     Dates: start: 201701

REACTIONS (3)
  - Oropharyngeal pain [Unknown]
  - Headache [Unknown]
  - Nasal congestion [Unknown]
